FAERS Safety Report 8576311 (Version 2)
Quarter: 2013Q2

REPORT INFORMATION
  Report Type: Spontaneous
  Country: MX (occurrence: MX)
  Receive Date: 20120523
  Receipt Date: 20130405
  Transmission Date: 20140414
  Serious: Yes (Other)
  Sender: FDA-Public Use
  Company Number: PHHY2011MX86916

PATIENT
  Age: 98 Year
  Sex: Female

DRUGS (6)
  1. CO-DIOVAN [Suspect]
     Indication: HYPERTENSION
     Dosage: 1 DF PER DAY(160 MG VAL, 25 MG HCT)
     Dates: start: 200811
  2. CO-DIOVAN [Suspect]
     Dosage: 1 DF PER DAY (160MG VAL, 12.5MG HCT)
     Route: 048
  3. ASPIRIN PROTECT [Concomitant]
     Indication: ANTICOAGULANT THERAPY
     Dosage: 1 DF, QD
     Dates: start: 2008
  4. TREMECOX [Concomitant]
     Indication: PAIN
     Dosage: 1 DF, DAILY
     Dates: start: 2008
  5. TREMECOX [Concomitant]
     Indication: MUSCLE SPASMS
  6. CAUDALINE [Concomitant]
     Indication: CARDIOVASCULAR DISORDER
     Dosage: 1 DF, DAILY
     Dates: start: 2009

REACTIONS (10)
  - Fall [Unknown]
  - Limb injury [Unknown]
  - Feeling hot [Unknown]
  - Decreased appetite [Unknown]
  - Memory impairment [Not Recovered/Not Resolved]
  - Tremor [Unknown]
  - Listless [Unknown]
  - Nervousness [Unknown]
  - Asthenia [Unknown]
  - Constipation [Not Recovered/Not Resolved]
